FAERS Safety Report 9518528 (Version 1)
Quarter: 2013Q1

REPORT INFORMATION
  Report Type: Spontaneous
  Country: US (occurrence: None)
  Receive Date: 20130305
  Receipt Date: 20130305
  Transmission Date: 20140127
  Serious: Yes (Disabling)
  Sender: FDA-Public Use
  Company Number: 163-21880-11122038

PATIENT
  Age: 73 Year
  Sex: Male

DRUGS (7)
  1. REVLIMID (LENALIDOMIDE) (25 MILLIGRAM, CAPSULES) [Suspect]
     Indication: PLASMA CELL MYELOMA
     Dosage: 25 MG, 1 IN 1 D, PO?
     Route: 048
     Dates: start: 20111114
  2. MS CONTIN (MORPHINE SULFATE) (UNKNOWN) [Concomitant]
  3. OXYCODONE (OXYCODONE) (UNKNOWN) (OXYCODONE) [Concomitant]
  4. DILTIAZEM (DILTIAZEM) (UNKNOWN) (DILTIAZEM) [Concomitant]
  5. MONTELUKAST (MONTELUKAST) (UNKNOWN) [Concomitant]
  6. ZOMETA (ZOLEDRONIC ACID) (UNKNOWN)? [Concomitant]
  7. HYDROXYZINE (HYDROXYZINE) (UNKNOWN) [Concomitant]

REACTIONS (4)
  - Rash generalised [None]
  - Urticaria [None]
  - Rash pruritic [None]
  - Rash erythematous [None]
